FAERS Safety Report 24054353 (Version 1)
Quarter: 2024Q3

REPORT INFORMATION
  Report Type: Report from Study
  Country: FR (occurrence: FR)
  Receive Date: 20240705
  Receipt Date: 20240705
  Transmission Date: 20241017
  Serious: Yes (Other)
  Sender: MERCK KGAA
  Company Number: FR-Merck KGaA-9049971

PATIENT
  Age: 33 Year
  Sex: Female

DRUGS (2)
  1. LEVOTHYROXINE [Suspect]
     Active Substance: LEVOTHYROXINE\LEVOTHYROXINE SODIUM
     Indication: Post procedural hypothyroidism
     Dosage: FREQUENCY TEXT: ON AN EMPTY STOMACH
  2. LEVOTHYROXINE [Suspect]
     Active Substance: LEVOTHYROXINE\LEVOTHYROXINE SODIUM
     Indication: Papillary thyroid cancer

REACTIONS (5)
  - Haemorrhage in pregnancy [Unknown]
  - Premature delivery [Unknown]
  - Blood thyroid stimulating hormone increased [Unknown]
  - Live birth [Recovered/Resolved]
  - Maternal exposure during pregnancy [Recovered/Resolved]
